FAERS Safety Report 7421864-3 (Version None)
Quarter: 2011Q2

REPORT INFORMATION
  Report Type: 
  Country: None (occurrence: None)
  Receive Date: 20110418
  Receipt Date: 20110412
  Transmission Date: 20111010
  Serious: Yes (Hospitalization)
  Sender: FDA-Public Use
  Company Number: US-SANOFI-AVENTIS-2011SA008499

PATIENT
  Age: 50 Year
  Sex: Male
  Weight: 127.01 kg

DRUGS (5)
  1. LANTUS [Suspect]
     Dosage: 30 UNITS EVERY MORNING AND 15 UNITS EVERY EVENING
     Route: 058
  2. SOLOSTAR [Suspect]
     Indication: TYPE 2 DIABETES MELLITUS
  3. SOLOSTAR [Suspect]
  4. HUMALOG [Concomitant]
  5. LANTUS [Suspect]
     Indication: TYPE 2 DIABETES MELLITUS
     Dosage: 30 UNITS EVERY MORNING AND 15 UNITS EVERY EVENING
     Route: 058

REACTIONS (3)
  - GASTRIC BANDING [None]
  - WEIGHT DECREASED [None]
  - BLOOD GLUCOSE INCREASED [None]
